FAERS Safety Report 7913434-5 (Version None)
Quarter: 2011Q4

REPORT INFORMATION
  Report Type: 
  Country: None (occurrence: None)
  Receive Date: 20111115
  Receipt Date: 20111108
  Transmission Date: 20120403
  Serious: Yes (Hospitalization)
  Sender: FDA-Public Use
  Company Number: US-BIOGENIDEC-2011BI038155

PATIENT
  Age: 60 Year
  Sex: Female

DRUGS (3)
  1. ANTIDEPRESSANTS (NOS) [Concomitant]
     Indication: BIPOLAR DISORDER
  2. TYSABRI [Suspect]
     Indication: MULTIPLE SCLEROSIS
     Route: 042
     Dates: start: 20101208, end: 20110825
  3. TYSABRI [Suspect]
     Route: 042
     Dates: start: 20090914, end: 20100927

REACTIONS (1)
  - MULTIPLE SCLEROSIS RELAPSE [None]
